FAERS Safety Report 21659883 (Version 4)
Quarter: 2023Q2

REPORT INFORMATION
  Report Type: Spontaneous
  Country: US (occurrence: US)
  Receive Date: 20221130
  Receipt Date: 20230516
  Transmission Date: 20230722
  Serious: Yes (Other)
  Sender: FDA-Public Use
  Company Number: US-GLENMARK PHARMACEUTICALS-2022GMK072723

PATIENT

DRUGS (1)
  1. ZONISAMIDE [Suspect]
     Active Substance: ZONISAMIDE
     Indication: Product used for unknown indication
     Dosage: 100 MILLIGRAM
     Route: 048

REACTIONS (10)
  - Faeces discoloured [Recovered/Resolved]
  - Abdominal discomfort [Unknown]
  - Recalled product administered [Unknown]
  - Heart rate irregular [Unknown]
  - Illness [Unknown]
  - Dysphagia [Unknown]
  - Dysuria [Recovered/Resolved]
  - Contusion [Unknown]
  - Abdominal pain [Unknown]
  - Dyspnoea [Unknown]
